FAERS Safety Report 14518424 (Version 2)
Quarter: 2018Q1

REPORT INFORMATION
  Report Type: Report from Study
  Country: US (occurrence: US)
  Receive Date: 20180212
  Receipt Date: 20180308
  Transmission Date: 20180509
  Serious: Yes (Hospitalization)
  Sender: FDA-Public Use
  Company Number: US-JNJFOC-20180214162

PATIENT
  Sex: Female

DRUGS (16)
  1. IMBRUVICA [Suspect]
     Active Substance: IBRUTINIB
     Indication: CHRONIC LYMPHOCYTIC LEUKAEMIA
     Route: 048
     Dates: start: 20170330
  2. TYLENOL [Concomitant]
     Active Substance: ACETAMINOPHEN
  3. COREG [Concomitant]
     Active Substance: CARVEDILOL
  4. LASIX [Concomitant]
     Active Substance: FUROSEMIDE
  5. AMOXICILLIN. [Concomitant]
     Active Substance: AMOXICILLIN
  6. VENLAFAXINE [Concomitant]
     Active Substance: VENLAFAXINE HYDROCHLORIDE
  7. CALTRATE [Concomitant]
     Active Substance: CALCIUM CARBONATE
  8. NORVASC [Concomitant]
     Active Substance: AMLODIPINE BESYLATE
  9. NOVOLOG [Concomitant]
     Active Substance: INSULIN ASPART
  10. ZOCOR [Concomitant]
     Active Substance: SIMVASTATIN
  11. PREDNISONE. [Concomitant]
     Active Substance: PREDNISONE
  12. SYMBICORT [Concomitant]
     Active Substance: BUDESONIDE\FORMOTEROL FUMARATE DIHYDRATE
  13. ELIQUIS [Concomitant]
     Active Substance: APIXABAN
  14. LISINOPRIL. [Concomitant]
     Active Substance: LISINOPRIL
  15. LORAZEPAM. [Concomitant]
     Active Substance: LORAZEPAM
  16. MULTIVITAMINS [Concomitant]
     Active Substance: VITAMINS

REACTIONS (1)
  - Ill-defined disorder [Not Recovered/Not Resolved]
